FAERS Safety Report 9535369 (Version 1)
Quarter: 2013Q3

REPORT INFORMATION
  Report Type: Report from Study
  Country: US (occurrence: US)
  Receive Date: 20130918
  Receipt Date: 20130918
  Transmission Date: 20140515
  Serious: Yes (Life-Threatening, Hospitalization)
  Sender: FDA-Public Use
  Company Number: US-US-EMD SERONO, INC.-7237718

PATIENT
  Sex: Male
  Weight: 115 kg

DRUGS (1)
  1. REBIF [Suspect]
     Indication: RELAPSING-REMITTING MULTIPLE SCLEROSIS
     Route: 058
     Dates: start: 20080126, end: 20130513

REACTIONS (3)
  - Myocardial ischaemia [Recovered/Resolved]
  - Hypoglycaemia [Recovered/Resolved]
  - Pain [Recovering/Resolving]
